FAERS Safety Report 10216505 (Version 4)
Quarter: 2015Q4

REPORT INFORMATION
  Report Type: Spontaneous
  Country: US (occurrence: US)
  Receive Date: 20140604
  Receipt Date: 20151214
  Transmission Date: 20160304
  Serious: No
  Sender: FDA-Public Use
  Company Number: US-PFIZER INC-2014149474

PATIENT
  Age: 73 Year
  Sex: Male
  Weight: 93 kg

DRUGS (12)
  1. DULCOLAX NOS [Concomitant]
     Active Substance: BISACODYL OR DOCUSATE SODIUM
     Indication: CONSTIPATION
     Dosage: 5 MG, AS NEEDED
     Route: 048
  2. MEGACE [Concomitant]
     Active Substance: MEGESTROL ACETATE
     Dosage: 400 MG, DAILY
     Route: 048
  3. AMOXIL [Concomitant]
     Active Substance: AMOXICILLIN
     Indication: PROPHYLAXIS
     Dosage: 500 MG, UNK (ONE HOUR PRIOR TO DENTAL PROCEDURE)
     Route: 048
  4. EMLA [Concomitant]
     Active Substance: LIDOCAINE\PRILOCAINE
     Dosage: 30 G, UNK
  5. VITAMIN B2 [Concomitant]
     Active Substance: RIBOFLAVIN
     Dosage: 25 MG, DAILY
     Route: 048
  6. LEVAQUIN [Concomitant]
     Active Substance: LEVOFLOXACIN
     Indication: FEBRILE NEUTROPENIA
     Dosage: 750 MG, DAILY
     Route: 048
  7. VFEND [Suspect]
     Active Substance: VORICONAZOLE
     Indication: ASPERGILLUS TEST NEGATIVE
  8. VFEND [Suspect]
     Active Substance: VORICONAZOLE
     Indication: PNEUMONIA FUNGAL
     Dosage: 200 MG, 2X/DAY
     Route: 048
  9. COLACE [Concomitant]
     Active Substance: DOCUSATE SODIUM
     Dosage: 100 MG, AS NEEDED
     Route: 048
  10. SAW PALMETTO STANDARDIZED EXTRACT [Concomitant]
     Dosage: UNK, 2X/DAY (TAKE 2 TABLETS)
     Route: 048
  11. SENOKOT [Concomitant]
     Active Substance: SENNOSIDES
     Dosage: 17.2 MG, AS NEEDED
  12. REMERON [Concomitant]
     Active Substance: MIRTAZAPINE
     Dosage: 7.5 MG, DAILY (NIGHTLY)
     Route: 048

REACTIONS (2)
  - Herpes zoster [Unknown]
  - Weight increased [Unknown]
